FAERS Safety Report 12137185 (Version 1)
Quarter: 2016Q1

REPORT INFORMATION
  Report Type: Spontaneous
  Country: US (occurrence: None)
  Receive Date: 20160301
  Receipt Date: 20160301
  Transmission Date: 20160526
  Serious: No
  Sender: FDA-Public Use
  Company Number: None

PATIENT
  Age: 65 Year
  Sex: Male
  Weight: 115.6 kg

DRUGS (2)
  1. OXALIPLATIN. [Suspect]
     Active Substance: OXALIPLATIN
     Indication: COLON CANCER
     Route: 042
     Dates: start: 20151014, end: 20160203
  2. LEUCOVORIN CALCIUM. [Suspect]
     Active Substance: LEUCOVORIN CALCIUM
     Indication: COLON CANCER
     Route: 042
     Dates: start: 20151014

REACTIONS (9)
  - Pruritus [None]
  - Paraesthesia [None]
  - Peripheral swelling [None]
  - Dizziness [None]
  - Urticaria [None]
  - Vomiting [None]
  - Joint swelling [None]
  - Nausea [None]
  - Rash [None]

NARRATIVE: CASE EVENT DATE: 20160120
